FAERS Safety Report 18107475 (Version 1)
Quarter: 2020Q3

REPORT INFORMATION
  Report Type: Spontaneous
  Country: AU (occurrence: AU)
  Receive Date: 20200804
  Receipt Date: 20200804
  Transmission Date: 20201103
  Serious: Yes (Hospitalization)
  Sender: FDA-Public Use
  Company Number: AU-ROCHE-2585858

PATIENT
  Age: 60 Year
  Sex: Female

DRUGS (1)
  1. TOCILIZUMAB. [Suspect]
     Active Substance: TOCILIZUMAB
     Indication: RHEUMATOID ARTHRITIS
     Route: 042
     Dates: start: 20160530

REACTIONS (3)
  - Laryngeal oedema [Recovering/Resolving]
  - Streptococcus test positive [Recovering/Resolving]
  - Epiglottitis [Recovering/Resolving]

NARRATIVE: CASE EVENT DATE: 20180520
